FAERS Safety Report 18407714 (Version 1)
Quarter: 2020Q4

REPORT INFORMATION
  Report Type: Spontaneous
  Country: JP (occurrence: JP)
  Receive Date: 20201020
  Receipt Date: 20201020
  Transmission Date: 20210114
  Serious: Yes (Hospitalization, Other)
  Sender: FDA-Public Use
  Company Number: JP-TAKEDA-2019TUS070059

PATIENT
  Age: 9 Decade
  Sex: Female
  Weight: 45 kg

DRUGS (13)
  1. VELCADE [Suspect]
     Active Substance: BORTEZOMIB
     Indication: PLASMA CELL MYELOMA
     Dosage: UNK UNK, 2/WEEK
     Route: 058
     Dates: start: 20191122, end: 20191129
  2. BAKTAR [Suspect]
     Active Substance: SULFAMETHOXAZOLE\TRIMETHOPRIM
     Indication: PROPHYLAXIS
     Dosage: UNK UNK, QD
     Route: 048
     Dates: start: 20191122, end: 20191201
  3. DEXAMETHASONE. [Concomitant]
     Active Substance: DEXAMETHASONE
     Indication: PLASMA CELL MYELOMA
     Dosage: UNK
     Route: 065
  4. LEVOFLOXACIN HEMIHYDRATE [Concomitant]
     Active Substance: LEVOFLOXACIN
     Indication: PNEUMONIA
     Dosage: UNK
     Route: 065
     Dates: start: 20191203, end: 20191211
  5. PREDNISOLONE. [Concomitant]
     Active Substance: PREDNISOLONE
     Dosage: UNK
     Route: 065
     Dates: start: 20191207, end: 20191211
  6. CEFTRIAXONE SODIUM HYDRATE [Concomitant]
     Active Substance: CEFTRIAXONE SODIUM
     Indication: PNEUMONIA
     Dosage: 2 GRAM, QD
     Route: 042
     Dates: start: 20191202, end: 20191203
  7. FEBURIC [Concomitant]
     Active Substance: FEBUXOSTAT
     Indication: PROPHYLAXIS
     Dosage: 20 MILLIGRAM, QD
     Route: 048
     Dates: start: 20191123, end: 20191203
  8. OXYCONTIN TR [Concomitant]
     Active Substance: OXYCODONE HYDROCHLORIDE
     Indication: PLASMA CELL MYELOMA
     Dosage: 5 MILLIGRAM, BID
     Route: 048
     Dates: start: 20191126, end: 20191203
  9. PREDNISOLONE. [Concomitant]
     Active Substance: PREDNISOLONE
     Dosage: 72 MILLIGRAM, QD
     Dates: start: 20191204, end: 201912
  10. METHYLPREDNISOLONE. [Concomitant]
     Active Substance: METHYLPREDNISOLONE
     Dosage: 625 MILLIGRAM, QD
     Route: 065
  11. ZOVIRAX ACTIVE [Concomitant]
     Indication: PROPHYLAXIS
     Dosage: 200 MILLIGRAM, QD
     Dates: start: 20191122, end: 20191201
  12. NEXIUM CONTROL [Concomitant]
     Active Substance: ESOMEPRAZOLE MAGNESIUM
     Indication: PROPHYLAXIS AGAINST GASTROINTESTINAL ULCER
     Dosage: 20 MILLIGRAM, QD
     Route: 048
     Dates: start: 20191122, end: 20191201
  13. REBAMIPIDE [Concomitant]
     Active Substance: REBAMIPIDE
     Indication: PROPHYLAXIS
     Dosage: 100 MILLIGRAM, QD
     Route: 048
     Dates: start: 20191123, end: 20191203

REACTIONS (4)
  - Cardiac failure [Recovered/Resolved]
  - Pain [Unknown]
  - Pneumonia [Recovered/Resolved]
  - Drug eruption [Recovered/Resolved]

NARRATIVE: CASE EVENT DATE: 20191126
